FAERS Safety Report 24638466 (Version 2)
Quarter: 2025Q1

REPORT INFORMATION
  Report Type: Spontaneous
  Country: US (occurrence: US)
  Receive Date: 20241119
  Receipt Date: 20250103
  Transmission Date: 20250408
  Serious: Yes (Death)
  Sender: PFIZER
  Company Number: US-PFIZER INC-PV202400087113

PATIENT
  Age: 54 Year
  Sex: Female

DRUGS (2)
  1. TUKYSA [Suspect]
     Active Substance: TUCATINIB
     Dosage: 150MG TAKE 2 TABLETS BY MOUTH TWICE DAILY
     Route: 048
     Dates: end: 20240923
  2. ENHERTU [Concomitant]
     Active Substance: FAM-TRASTUZUMAB DERUXTECAN-NXKI

REACTIONS (1)
  - Death [Fatal]

NARRATIVE: CASE EVENT DATE: 20240923
